FAERS Safety Report 20092394 (Version 3)
Quarter: 2023Q2

REPORT INFORMATION
  Report Type: Report from Study
  Country: US (occurrence: US)
  Receive Date: 20211119
  Receipt Date: 20230510
  Transmission Date: 20230722
  Serious: Yes (Other)
  Sender: FDA-Public Use
  Company Number: US-BIOGEN-2021BI01067748

PATIENT
  Sex: Female

DRUGS (7)
  1. VUMERITY [Suspect]
     Active Substance: DIROXIMEL FUMARATE
     Indication: Multiple sclerosis
     Route: 050
  2. VUMERITY [Suspect]
     Active Substance: DIROXIMEL FUMARATE
     Route: 050
  3. VUMERITY [Suspect]
     Active Substance: DIROXIMEL FUMARATE
     Route: 050
     Dates: start: 20210730, end: 20210730
  4. VUMERITY [Suspect]
     Active Substance: DIROXIMEL FUMARATE
     Route: 050
  5. VUMERITY [Suspect]
     Active Substance: DIROXIMEL FUMARATE
     Route: 050
     Dates: start: 20210730, end: 20210730
  6. VUMERITY [Suspect]
     Active Substance: DIROXIMEL FUMARATE
     Route: 050
     Dates: start: 20210730
  7. TECFIDERA [Suspect]
     Active Substance: DIMETHYL FUMARATE
     Indication: Multiple sclerosis
     Route: 050
     Dates: start: 20151020, end: 20210729

REACTIONS (18)
  - Cerebrovascular accident [Unknown]
  - Musculoskeletal disorder [Not Recovered/Not Resolved]
  - Paraesthesia [Unknown]
  - Confusional state [Unknown]
  - Loss of control of legs [Unknown]
  - Gait disturbance [Unknown]
  - Limb discomfort [Unknown]
  - Hypoaesthesia [Unknown]
  - Motor dysfunction [Unknown]
  - Memory impairment [Unknown]
  - Central nervous system lesion [Unknown]
  - Fear [Unknown]
  - Feeling abnormal [Unknown]
  - Pain [Recovered/Resolved]
  - Pain in extremity [Unknown]
  - Stress [Unknown]
  - Weight increased [Not Recovered/Not Resolved]
  - Decreased activity [Not Recovered/Not Resolved]
